FAERS Safety Report 25874491 (Version 2)
Quarter: 2025Q4

REPORT INFORMATION
  Report Type: Spontaneous
  Country: US (occurrence: US)
  Receive Date: 20251002
  Receipt Date: 20251022
  Transmission Date: 20260118
  Serious: No
  Sender: CALLIDITAS THERAPEUTICS AB
  Company Number: US-Calliditas-2025CAL02992

PATIENT
  Age: 60 Year
  Sex: Male

DRUGS (8)
  1. TARPEYO [Suspect]
     Active Substance: BUDESONIDE
     Indication: IgA nephropathy
     Dosage: 16MG (4MG CAPSULES) ONCE DAILY
     Route: 048
     Dates: start: 20250915
  2. ATORVASTATIN [Concomitant]
     Active Substance: ATORVASTATIN
  3. FILSPARI [Concomitant]
     Active Substance: SPARSENTAN
  4. EPIPEN [Concomitant]
     Active Substance: EPINEPHRINE
  5. NIACIN [Concomitant]
     Active Substance: NIACIN
  6. VITAMINS [Concomitant]
     Active Substance: VITAMINS
  7. AMLODIPINE [Concomitant]
     Active Substance: AMLODIPINE BESYLATE
  8. ASPIRIN [Concomitant]
     Active Substance: ASPIRIN

REACTIONS (3)
  - Cough [Recovered/Resolved]
  - Seasonal allergy [Recovering/Resolving]
  - Nasopharyngitis [Recovered/Resolved]

NARRATIVE: CASE EVENT DATE: 20250901
